FAERS Safety Report 15313114 (Version 2)
Quarter: 2018Q3

REPORT INFORMATION
  Report Type: Spontaneous
  Country: US (occurrence: US)
  Receive Date: 20180823
  Receipt Date: 20180911
  Transmission Date: 20181010
  Serious: No
  Sender: FDA-Public Use
  Company Number: US-009507513-1808USA009957

PATIENT
  Age: 31 Year
  Sex: Female
  Weight: 65.76 kg

DRUGS (2)
  1. NEXPLANON [Suspect]
     Active Substance: ETONOGESTREL
     Dosage: 1 NEW ROD EVERY 3 YEARS
     Route: 059
     Dates: start: 20180815, end: 20180815
  2. NEXPLANON [Suspect]
     Active Substance: ETONOGESTREL
     Dosage: 1 NEW ROD EVERY 3 YEARS
     Route: 059
     Dates: start: 20180818

REACTIONS (5)
  - Device difficult to use [Recovered/Resolved]
  - No adverse event [Unknown]
  - Device expulsion [Recovered/Resolved]
  - Complication of device insertion [Recovered/Resolved]
  - Product quality issue [Unknown]

NARRATIVE: CASE EVENT DATE: 20180815
